FAERS Safety Report 17282926 (Version 2)
Quarter: 2020Q1

REPORT INFORMATION
  Report Type: Spontaneous
  Country: JP (occurrence: JP)
  Receive Date: 20200117
  Receipt Date: 20200207
  Transmission Date: 20200409
  Serious: Yes (Other)
  Sender: FDA-Public Use
  Company Number: JP-ASTRAZENECA-2020SE06702

PATIENT
  Age: 80 Year
  Sex: Male

DRUGS (1)
  1. IMFINZI [Suspect]
     Active Substance: DURVALUMAB
     Indication: NON-SMALL CELL LUNG CANCER
     Route: 041
     Dates: start: 201912, end: 201912

REACTIONS (3)
  - Nasopharyngitis [Unknown]
  - Otitis media [Unknown]
  - Deafness [Recovered/Resolved]

NARRATIVE: CASE EVENT DATE: 201912
